FAERS Safety Report 5451107-1 (Version None)
Quarter: 2007Q3

REPORT INFORMATION
  Report Type: 
  Country: None (occurrence: None)
  Receive Date: 20070913
  Receipt Date: 20070904
  Transmission Date: 20080115
  Serious: Yes (Death)
  Sender: FDA-Public Use
  Company Number: FR-BRISTOL-MYERS SQUIBB COMPANY-13904842

PATIENT
  Age: 15 Year
  Sex: Male

DRUGS (5)
  1. ENDOXAN [Suspect]
     Indication: ACUTE LYMPHOCYTIC LEUKAEMIA
     Dosage: 2ND ADMINISTERED ON 23-APR-2007  3RD ADMINISTERED ON 26-APR-2007
     Route: 042
     Dates: start: 20070420, end: 20070420
  2. METHOTREXATE-TEVA [Suspect]
     Indication: ACUTE LYMPHOCYTIC LEUKAEMIA
     Route: 042
     Dates: start: 20070419, end: 20070419
  3. ONCOVIN [Suspect]
     Indication: ACUTE LYMPHOCYTIC LEUKAEMIA
     Dosage: 2ND DOSE ADMINISTERED ON 26-APR-2007
     Route: 042
     Dates: start: 20070419, end: 20070419
  4. KIDROLASE [Suspect]
     Indication: ACUTE LYMPHOCYTIC LEUKAEMIA
     Route: 042
     Dates: start: 20070423, end: 20070423
  5. CERUBIDINE [Suspect]
     Indication: ACUTE LYMPHOCYTIC LEUKAEMIA
     Route: 042
     Dates: start: 20070426, end: 20070426

REACTIONS (2)
  - BONE MARROW FAILURE [None]
  - SEPTIC SHOCK [None]
